FAERS Safety Report 10227550 (Version 2)
Quarter: 2014Q2

REPORT INFORMATION
  Report Type: Spontaneous
  Country: SG (occurrence: SG)
  Receive Date: 20140610
  Receipt Date: 20140613
  Transmission Date: 20141212
  Serious: Yes (Death, Other)
  Sender: FDA-Public Use
  Company Number: PHHY2014SG070566

PATIENT
  Sex: Female

DRUGS (2)
  1. LEPONEX [Suspect]
     Dosage: UNK
  2. LEPONEX [Suspect]
     Dosage: 850 MG PER DAY

REACTIONS (4)
  - Death [Fatal]
  - Fall [Unknown]
  - Pneumonia [Unknown]
  - Overdose [Unknown]
